FAERS Safety Report 10308854 (Version 4)
Quarter: 2014Q3

REPORT INFORMATION
  Report Type: Report from Study
  Country: US (occurrence: US)
  Receive Date: 20140716
  Receipt Date: 20140929
  Transmission Date: 20150326
  Serious: Yes (Hospitalization, Other)
  Sender: FDA-Public Use
  Company Number: US-PFIZER INC-2014187231

PATIENT
  Age: 30 Year
  Sex: Male
  Weight: 78.37 kg

DRUGS (3)
  1. TOFACITINIB CITRATE [Suspect]
     Active Substance: TOFACITINIB CITRATE
     Indication: RHEUMATOID ARTHRITIS
     Dosage: 10MG (2 TAB, 5MG TAB) 2X/DAY
     Route: 048
     Dates: start: 20110405, end: 20140620
  2. TRAMADOL HYDROCHLORIDE. [Concomitant]
     Active Substance: TRAMADOL HYDROCHLORIDE
     Indication: RHEUMATOID ARTHRITIS
     Dosage: 50 MG, 1X/DAY AT NIGHT
     Route: 048
     Dates: start: 20101206, end: 20140621
  3. NAPROSYN [Concomitant]
     Active Substance: NAPROXEN
     Indication: RHEUMATOID ARTHRITIS
     Dosage: 500 MG, 2X/DAY
     Route: 048
     Dates: start: 20100304, end: 20140621

REACTIONS (1)
  - Adenocarcinoma of appendix [Not Recovered/Not Resolved]

NARRATIVE: CASE EVENT DATE: 20140620
